FAERS Safety Report 10986406 (Version 1)
Quarter: 2015Q1

REPORT INFORMATION
  Report Type: Spontaneous
  Country: US (occurrence: None)
  Receive Date: 20150324
  Receipt Date: 20150324
  Transmission Date: 20150721
  Serious: Yes (Other)
  Sender: FDA-Public Use
  Company Number: 1000067721

PATIENT
  Age: 67 Year
  Sex: Female

DRUGS (5)
  1. XANAX [Concomitant]
     Active Substance: ALPRAZOLAM
  2. CELEBREX (CELECOXIB) (CELECOXIB) [Concomitant]
  3. VIIBRYD [Suspect]
     Active Substance: VILAZODONE HYDROCHLORIDE
     Indication: DEPRESSION
     Dosage: 10 MG (10 MG, 1 IN 1 D), ORAL
     Route: 048
     Dates: start: 20140528, end: 20140603
  4. GEODON (ZIPRASIDONE) (ZIPRASIDONE) [Concomitant]
  5. SOMA [Concomitant]
     Active Substance: CARISOPRODOL

REACTIONS (4)
  - Suicidal ideation [None]
  - Fear [None]
  - Somnolence [None]
  - Feeling abnormal [None]

NARRATIVE: CASE EVENT DATE: 20140528
